FAERS Safety Report 10255336 (Version 1)
Quarter: 2014Q2

REPORT INFORMATION
  Report Type: Spontaneous
  Country: US (occurrence: US)
  Receive Date: 20140624
  Receipt Date: 20140624
  Transmission Date: 20141212
  Serious: No
  Sender: FDA-Public Use
  Company Number: US-PFIZER INC-2014169025

PATIENT
  Age: 76 Year
  Sex: Female

DRUGS (2)
  1. SUTENT [Suspect]
     Indication: CONNECTIVE TISSUE NEOPLASM
     Dosage: 37.5 MG (25 MG + 12.5 MG), 1X/DAY
     Route: 048
     Dates: start: 20131217
  2. COMPAZINE [Concomitant]
     Dosage: UNK

REACTIONS (1)
  - Hand-foot-and-mouth disease [Recovering/Resolving]
